FAERS Safety Report 9938533 (Version 2)
Quarter: 2014Q1

REPORT INFORMATION
  Report Type: Report from Study
  Country: US (occurrence: US)
  Receive Date: 20140303
  Receipt Date: 20140303
  Transmission Date: 20141002
  Serious: No
  Sender: FDA-Public Use
  Company Number: US-ABBVIE-12P-163-1008967-00

PATIENT
  Age: 19 Year
  Sex: Female

DRUGS (3)
  1. HUMIRA [Suspect]
     Indication: COLITIS ULCERATIVE
     Dosage: LOADING DOSE
     Route: 058
     Dates: start: 20120919, end: 20120919
  2. HUMIRA [Suspect]
     Route: 058
     Dates: start: 20121217
  3. PREDNISONE [Concomitant]
     Indication: COLITIS ULCERATIVE
     Dosage: 20MG DAILY
     Dates: end: 201211

REACTIONS (7)
  - Haematochezia [Not Recovered/Not Resolved]
  - Inappropriate schedule of drug administration [Unknown]
  - Fungal infection [Unknown]
  - Urinary tract infection [Unknown]
  - Pelvic pain [Unknown]
  - Decreased appetite [Not Recovered/Not Resolved]
  - Drug ineffective [Not Recovered/Not Resolved]
